FAERS Safety Report 8302372-4 (Version None)
Quarter: 2012Q2

REPORT INFORMATION
  Report Type: 
  Country: None (occurrence: None)
  Receive Date: 20120420
  Receipt Date: 20120416
  Transmission Date: 20120825
  Serious: Yes (Hospitalization)
  Sender: FDA-Public Use
  Company Number: GB-SP-2011-07107

PATIENT
  Sex: Male
  Weight: 69.5 kg

DRUGS (4)
  1. IMMUCYST [Suspect]
     Indication: BLADDER CANCER
     Dosage: NOT REPORTED
     Route: 043
     Dates: start: 20110201, end: 20110706
  2. INTAL [Concomitant]
     Indication: ASTHMA
  3. VENTOLIN [Concomitant]
     Indication: ASTHMA
  4. ENALAPRIL MALEATE [Concomitant]
     Indication: HYPERTENSION

REACTIONS (11)
  - DISSEMINATED TUBERCULOSIS [None]
  - UROSEPSIS [None]
  - PYREXIA [None]
  - VOMITING PROJECTILE [None]
  - HAEMATURIA [None]
  - ASTHENIA [None]
  - CHILLS [None]
  - HYPERSENSITIVITY [None]
  - DYSPNOEA [None]
  - COLD SWEAT [None]
  - URETHRAL INJURY [None]
